FAERS Safety Report 19744963 (Version 1)
Quarter: 2021Q3

REPORT INFORMATION
  Report Type: Spontaneous
  Country: US (occurrence: US)
  Receive Date: 20210824
  Receipt Date: 20210824
  Transmission Date: 20211014
  Serious: Yes (Other)
  Sender: FDA-Public Use
  Company Number: None

PATIENT
  Age: 64 Year
  Sex: Male
  Weight: 81 kg

DRUGS (4)
  1. ACETAMINOPHEN. [Concomitant]
     Active Substance: ACETAMINOPHEN
     Dates: start: 20210811, end: 20210811
  2. ROPIVACAINE. [Concomitant]
     Active Substance: ROPIVACAINE HYDROCHLORIDE
     Dates: start: 20210811, end: 20210811
  3. FAMATIDINE [Concomitant]
     Dates: start: 20210808, end: 20210808
  4. EDOXABAN [Suspect]
     Active Substance: EDOXABAN TOSYLATE
     Indication: DEVICE RELATED INFECTION
     Dosage: ?          OTHER FREQUENCY:QTH;?
     Route: 048

REACTIONS (1)
  - Axillary vein thrombosis [None]

NARRATIVE: CASE EVENT DATE: 20210811
